FAERS Safety Report 11537459 (Version 1)
Quarter: 2015Q3

REPORT INFORMATION
  Report Type: Spontaneous
  Country: US (occurrence: US)
  Receive Date: 20150922
  Receipt Date: 20150922
  Transmission Date: 20151125
  Serious: Yes (Hospitalization, Other)
  Sender: FDA-Public Use
  Company Number: US-AMGEN-USASP2015095803

PATIENT
  Age: 75 Year
  Sex: Female

DRUGS (1)
  1. PROLIA [Suspect]
     Active Substance: DENOSUMAB
     Indication: PRODUCT USED FOR UNKNOWN INDICATION
     Dosage: UNK
     Route: 065

REACTIONS (15)
  - Peripheral swelling [Unknown]
  - Decreased appetite [Unknown]
  - Musculoskeletal disorder [Unknown]
  - Nausea [Unknown]
  - Insomnia [Not Recovered/Not Resolved]
  - Cataract operation [Unknown]
  - Dehydration [Unknown]
  - Cystitis [Unknown]
  - Photophobia [Unknown]
  - Blood calcium decreased [Unknown]
  - Oropharyngeal pain [Unknown]
  - Arthropathy [Unknown]
  - Blood sodium decreased [Unknown]
  - Vein disorder [Unknown]
  - Back pain [Unknown]

NARRATIVE: CASE EVENT DATE: 201506
